FAERS Safety Report 21189754 (Version 2)
Quarter: 2023Q4

REPORT INFORMATION
  Report Type: Spontaneous
  Country: GB (occurrence: GB)
  Receive Date: 20220809
  Receipt Date: 20231122
  Transmission Date: 20240109
  Serious: Yes (Other)
  Sender: FDA-Public Use
  Company Number: GB-TEVA-2022-GB-2062449

PATIENT
  Sex: Male

DRUGS (5)
  1. DEXAMETHASONE [Suspect]
     Active Substance: DEXAMETHASONE
     Indication: Atopic keratoconjunctivitis
     Route: 061
  2. DEXAMETHASONE [Suspect]
     Active Substance: DEXAMETHASONE
     Indication: Periorbital swelling
  3. DUPILUMAB [Suspect]
     Active Substance: DUPILUMAB
     Indication: Dermatitis atopic
     Dosage: THREE CYCLES
     Route: 065
  4. OLOPATADINE [Concomitant]
     Active Substance: OLOPATADINE
     Indication: Atopic keratoconjunctivitis
     Route: 061
  5. OLOPATADINE [Concomitant]
     Active Substance: OLOPATADINE
     Indication: Periorbital swelling

REACTIONS (4)
  - Ulcerative keratitis [Recovering/Resolving]
  - Corneal perforation [Recovering/Resolving]
  - Keratoconus [Recovering/Resolving]
  - Cataract subcapsular [Recovering/Resolving]
